FAERS Safety Report 19905030 (Version 1)
Quarter: 2021Q3

REPORT INFORMATION
  Report Type: Report from Study
  Country: MX (occurrence: MX)
  Receive Date: 20210930
  Receipt Date: 20210930
  Transmission Date: 20211014
  Serious: Yes (Hospitalization, Other)
  Sender: FDA-Public Use
  Company Number: NVSC2021MX114543

PATIENT
  Sex: Male
  Weight: 110 kg

DRUGS (1)
  1. EXFORGE HCT [Suspect]
     Active Substance: AMLODIPINE BESYLATE\HYDROCHLOROTHIAZIDE\VALSARTAN
     Indication: HYPERTENSION
     Dosage: 0.5 DF, BID (IN THE MORNING AND AT NIGHT)
     Route: 048
     Dates: start: 2017

REACTIONS (5)
  - Blood pressure abnormal [Unknown]
  - Blood glucose increased [Recovered/Resolved]
  - Intervertebral disc protrusion [Recovered/Resolved]
  - Sensory loss [Not Recovered/Not Resolved]
  - Incorrect dose administered [Unknown]

NARRATIVE: CASE EVENT DATE: 2017
